FAERS Safety Report 6439619-5 (Version None)
Quarter: 2009Q4

REPORT INFORMATION
  Report Type: 
  Country: None (occurrence: None)
  Receive Date: 20091113
  Receipt Date: 20091106
  Transmission Date: 20100525
  Serious: Yes (Other)
  Sender: FDA-Public Use
  Company Number: B0602201A

PATIENT
  Sex: Female

DRUGS (5)
  1. NIQUITIN [Suspect]
     Indication: SMOKING CESSATION THERAPY
     Route: 062
     Dates: start: 20090429, end: 20090520
  2. RISPERIDONE [Concomitant]
     Dosage: 2MG PER DAY
  3. AMITRIPTYLINE HCL [Concomitant]
     Dosage: 50MG PER DAY
  4. DETRUSITOL [Concomitant]
     Dosage: 4MG PER DAY
  5. CAMCOLIT [Concomitant]

REACTIONS (3)
  - ANXIETY [None]
  - HALLUCINATION [None]
  - INSOMNIA [None]
